FAERS Safety Report 10779387 (Version 1)
Quarter: 2015Q1

REPORT INFORMATION
  Report Type: Spontaneous
  Country: US (occurrence: None)
  Receive Date: 20150206
  Receipt Date: 20150206
  Transmission Date: 20150721
  Serious: No
  Sender: FDA-Public Use
  Company Number: None

PATIENT
  Age: 55 Year
  Sex: Female

DRUGS (1)
  1. XELJANZ [Suspect]
     Active Substance: TOFACITINIB CITRATE
     Indication: RHEUMATOID ARTHRITIS
     Dosage: 1 TABLET BID ORAL
     Route: 048

REACTIONS (4)
  - Headache [None]
  - Nausea [None]
  - Decreased appetite [None]
  - Sinus disorder [None]

NARRATIVE: CASE EVENT DATE: 20150205
